FAERS Safety Report 21232736 (Version 1)
Quarter: 2022Q3

REPORT INFORMATION
  Report Type: Spontaneous
  Country: US (occurrence: None)
  Receive Date: 20220819
  Receipt Date: 20220819
  Transmission Date: 20221026
  Serious: Yes (Hospitalization, Other)
  Sender: FDA-Public Use
  Company Number: US-MLMSERVICE-20220801-3708562-1

PATIENT
  Age: 7 Decade
  Sex: Male

DRUGS (2)
  1. LORAZEPAM [Suspect]
     Active Substance: LORAZEPAM
     Indication: Catatonia
     Route: 042
  2. LORAZEPAM [Suspect]
     Active Substance: LORAZEPAM
     Route: 065

REACTIONS (1)
  - Catatonia [Recovered/Resolved]
